FAERS Safety Report 7002243-X (Version None)
Quarter: 2010Q3

REPORT INFORMATION
  Report Type: 
  Country: None (occurrence: None)
  Receive Date: 20100920
  Receipt Date: 20070518
  Transmission Date: 20110219
  Serious: Yes (Hospitalization)
  Sender: FDA-Public Use
  Company Number: US-ASTRAZENECA-2006UW08274

PATIENT
  Age: 17563 Day
  Sex: Male
  Weight: 113.4 kg

DRUGS (11)
  1. SEROQUEL [Suspect]
     Indication: BIPOLAR DISORDER
     Route: 048
     Dates: start: 20030101, end: 20050101
  2. SEROQUEL [Suspect]
     Indication: SLEEP DISORDER
     Route: 048
     Dates: start: 20030101, end: 20050101
  3. SEROQUEL [Suspect]
     Dosage: 100MG, THREE TABS DAILY
     Route: 048
     Dates: start: 20030529, end: 20050731
  4. SEROQUEL [Suspect]
     Dosage: 100MG, THREE TABS DAILY
     Route: 048
     Dates: start: 20030529, end: 20050731
  5. SEROQUEL [Suspect]
     Dosage: 100MG TO 300MG
     Route: 048
     Dates: start: 20050908
  6. SEROQUEL [Suspect]
     Dosage: 100MG TO 300MG
     Route: 048
     Dates: start: 20050908
  7. CLONAZEPAM [Concomitant]
     Route: 048
     Dates: start: 20020827
  8. ZOLOFT [Concomitant]
     Route: 048
     Dates: start: 20020506
  9. PROZAC [Concomitant]
     Route: 048
     Dates: start: 20010321
  10. PAXIL [Concomitant]
     Dosage: 20MG TO 30MG
     Dates: start: 19961127
  11. LORAZEPAM [Concomitant]
     Dates: start: 20051029

REACTIONS (3)
  - DIABETES MELLITUS [None]
  - DRUG HYPERSENSITIVITY [None]
  - TYPE 2 DIABETES MELLITUS [None]
